FAERS Safety Report 7038642-X (Version None)
Quarter: 2010Q4

REPORT INFORMATION
  Report Type: 
  Country: None (occurrence: None)
  Receive Date: 20101011
  Receipt Date: 20100927
  Transmission Date: 20110411
  Serious: No
  Sender: FDA-Public Use
  Company Number: US-PFIZER INC-2010122901

PATIENT
  Sex: Male
  Weight: 88.435 kg

DRUGS (10)
  1. LYRICA [Suspect]
     Indication: DIABETIC NEUROPATHY
     Dosage: UNK
  2. LYRICA [Suspect]
     Dosage: 600 MG, DAILY
  3. LYRICA [Suspect]
     Dosage: 50 MG, 2X/DAY
     Dates: start: 20100101
  4. LYRICA [Suspect]
     Dosage: 100 MG, 2X/DAY
     Dates: start: 20100101
  5. METFORMIN/PIOGLITAZONE [Concomitant]
     Dosage: UNK
  6. LIPITOR [Concomitant]
     Dosage: UNK
  7. GLIMEPIRIDE [Concomitant]
     Dosage: UNK
  8. RAMIPRIL [Concomitant]
     Dosage: UNK
  9. ACIPHEX [Concomitant]
     Dosage: UNK
  10. INSULIN [Concomitant]
     Dosage: UNK

REACTIONS (3)
  - DRUG INEFFECTIVE [None]
  - DRY MOUTH [None]
  - OEDEMA PERIPHERAL [None]
